FAERS Safety Report 24941813 (Version 1)
Quarter: 2025Q1

REPORT INFORMATION
  Report Type: Spontaneous
  Country: US (occurrence: US)
  Receive Date: 20250207
  Receipt Date: 20250207
  Transmission Date: 20250409
  Serious: Yes (Hospitalization, Other)
  Sender: AMGEN
  Company Number: US-AMGEN-USASP2025020157

PATIENT
  Age: 41 Year
  Sex: Female

DRUGS (8)
  1. PREDNISONE [Suspect]
     Active Substance: PREDNISONE
     Indication: Immunosuppressant drug therapy
     Route: 065
  2. PREDNISONE [Suspect]
     Active Substance: PREDNISONE
     Route: 065
  3. FILGRASTIM [Suspect]
     Active Substance: FILGRASTIM
     Indication: Haematopoietic stem cell mobilisation
     Route: 065
  4. IBUPROFEN [Concomitant]
     Active Substance: IBUPROFEN
     Indication: Abdominal discomfort
     Dosage: 600-900 MG, QD
  5. BORTEZOMIB [Concomitant]
     Active Substance: BORTEZOMIB
  6. BORTEZOMIB [Concomitant]
     Active Substance: BORTEZOMIB
  7. DEXAMETHASONE [Concomitant]
     Active Substance: DEXAMETHASONE
  8. MELPHALAN [Concomitant]
     Active Substance: MELPHALAN

REACTIONS (8)
  - Febrile neutropenia [Unknown]
  - Appendicitis [Unknown]
  - Primary amyloidosis [Unknown]
  - Neuropathy peripheral [Unknown]
  - Clostridium difficile colitis [Unknown]
  - Hyperkalaemia [Unknown]
  - Complications of transplanted kidney [Unknown]
  - Hyperglycaemia [Unknown]
